FAERS Safety Report 25400473 (Version 2)
Quarter: 2025Q2

REPORT INFORMATION
  Report Type: Other
  Country: JP (occurrence: JP)
  Receive Date: 20250605
  Receipt Date: 20250613
  Transmission Date: 20250717
  Serious: Yes (Hospitalization)
  Sender: ESTEVE
  Company Number: JP-Esteve Pharmaceuticals SA-2178090

PATIENT
  Age: 84 Year
  Sex: Female

DRUGS (13)
  1. METOPIRONE [Suspect]
     Active Substance: METYRAPONE
     Indication: Cushing^s syndrome
  2. METOPIRONE [Suspect]
     Active Substance: METYRAPONE
  3. ST(Sulfamethoxazole-Trimethoprim) Combination Tablets [Concomitant]
  4. CLOTIAZEPAM [Concomitant]
     Active Substance: CLOTIAZEPAM
  5. FAMOTIDINE [Concomitant]
     Active Substance: FAMOTIDINE
  6. ICOSAPENT ETHYL [Concomitant]
     Active Substance: ICOSAPENT ETHYL
  7. XARELTO [Concomitant]
     Active Substance: RIVAROXABAN
  8. PITAVASTATIN. [Concomitant]
     Active Substance: PITAVASTATIN CALCIUM
  9. DILTIAZEM [Concomitant]
     Active Substance: DILTIAZEM
  10. AZILSARTAN KAMEDOXOMIL [Concomitant]
     Active Substance: AZILSARTAN KAMEDOXOMIL
  11. SPIRONOLACTONE [Concomitant]
     Active Substance: SPIRONOLACTONE
  12. METOPIRONE [Suspect]
     Active Substance: METYRAPONE
  13. METOPIRONE [Suspect]
     Active Substance: METYRAPONE

REACTIONS (2)
  - Pneumocystis jirovecii pneumonia [Recovered/Resolved]
  - Hypophagia [Recovered/Resolved]
